FAERS Safety Report 6677077-6 (Version None)
Quarter: 2010Q2

REPORT INFORMATION
  Report Type: 
  Country: None (occurrence: None)
  Receive Date: 20100412
  Receipt Date: 20100405
  Transmission Date: 20101027
  Serious: Yes (Other)
  Sender: FDA-Public Use
  Company Number: US-JNJCH-2010003403

PATIENT
  Age: 45 Year
  Sex: Male
  Weight: 79.4 kg

DRUGS (1)
  1. DRAMAMINE LESS DROWSY FORMULA [Suspect]
     Indication: DRUG USE FOR UNKNOWN INDICATION
     Dosage: TEXT:UNSPECIFIED ONCE AS DIRECTED
     Route: 048
     Dates: start: 20100129, end: 20100129

REACTIONS (3)
  - CHRONIC OBSTRUCTIVE PULMONARY DISEASE [None]
  - HEADACHE [None]
  - INFLUENZA LIKE ILLNESS [None]
